FAERS Safety Report 6469777-8 (Version None)
Quarter: 2009Q4

REPORT INFORMATION
  Report Type: 
  Country: None (occurrence: None)
  Receive Date: 20091203
  Receipt Date: 20080206
  Transmission Date: 20100525
  Serious: Yes (Hospitalization)
  Sender: FDA-Public Use
  Company Number: FR-ELI_LILLY_AND_COMPANY-FR200710002669

PATIENT
  Age: 69 Year
  Sex: Female
  Weight: 68 kg

DRUGS (4)
  1. GEMZAR [Suspect]
     Indication: PANCREATIC CARCINOMA RECURRENT
     Dosage: 1000 MG/M2, OTHER
     Route: 042
     Dates: start: 20070625, end: 20071026
  2. LEVOTHYROXINE SODIUM [Concomitant]
     Indication: HYPOTHYROIDISM
     Dosage: 120 UG, DAILY (1/D)
     Route: 048
  3. ACTISKENAN [Concomitant]
     Indication: PAIN
     Dosage: 120 UG, DAILY (1/D)
     Route: 048
  4. SKENAN [Concomitant]
     Indication: PAIN
     Dosage: 160 UG, DAILY (1/D)
     Route: 048

REACTIONS (4)
  - CEREBELLAR SYNDROME [None]
  - FACE OEDEMA [None]
  - OEDEMA PERIPHERAL [None]
  - PARAESTHESIA [None]
